FAERS Safety Report 21904283 (Version 1)
Quarter: 2023Q1

REPORT INFORMATION
  Report Type: Report from Study
  Country: HU (occurrence: HU)
  Receive Date: 20230124
  Receipt Date: 20230124
  Transmission Date: 20230418
  Serious: Yes (Hospitalization)
  Sender: FDA-Public Use
  Company Number: HU-ABBVIE-4279049

PATIENT
  Sex: Male

DRUGS (4)
  1. CARBIDOPA\LEVODOPA [Suspect]
     Active Substance: CARBIDOPA\LEVODOPA
     Indication: Parkinson^s disease
     Dosage: MORNING DOSE: 8.5 ML; CONTINUOUS DOSE: 3.3 ML/HOUR; EXTRA DOSE: 2.3 ML
     Route: 050
     Dates: start: 20140401
  2. CARBIDOPA\LEVODOPA [Suspect]
     Active Substance: CARBIDOPA\LEVODOPA
  3. levodopa, benserazide (Madopar) [Concomitant]
     Indication: Parkinson^s disease
     Dosage: 100 MG LEVODOPA, 25 MG BENSERAZIDE /TABLET
     Route: 048
  4. Frontin (Alprazolam) [Concomitant]
     Indication: Product used for unknown indication
     Dosage: 0.25 MILLIGRAM
     Route: 048

REACTIONS (1)
  - Loss of consciousness [Recovered/Resolved]

NARRATIVE: CASE EVENT DATE: 20230112
